FAERS Safety Report 5386307-2 (Version None)
Quarter: 2007Q3

REPORT INFORMATION
  Report Type: 
  Country: None (occurrence: None)
  Receive Date: 20070710
  Receipt Date: 20070625
  Transmission Date: 20080115
  Serious: Yes (Other)
  Sender: FDA-Public Use
  Company Number: US020426

PATIENT
  Age: 18 Year
  Sex: Male

DRUGS (1)
  1. ACTIQ [Suspect]
     Dosage: 600 UG ONCE BUCCAL
     Route: 002
     Dates: start: 20051103, end: 20051103

REACTIONS (3)
  - HYPERTENSION [None]
  - SUICIDE ATTEMPT [None]
  - TACHYCARDIA [None]
